FAERS Safety Report 18248264 (Version 1)
Quarter: 2020Q3

REPORT INFORMATION
  Report Type: Report from Study
  Country: CA (occurrence: CA)
  Receive Date: 20200909
  Receipt Date: 20200909
  Transmission Date: 20201103
  Serious: Yes (Hospitalization, Other)
  Sender: FDA-Public Use
  Company Number: CA-JNJFOC-20190931733

PATIENT
  Age: 16 Year
  Sex: Male
  Weight: 58.3 kg

DRUGS (1)
  1. REMICADE [Suspect]
     Active Substance: INFLIXIMAB
     Indication: CROHN^S DISEASE
     Route: 042
     Dates: start: 201702

REACTIONS (7)
  - Meningitis bacterial [Unknown]
  - Haematochezia [Unknown]
  - Off label use [Unknown]
  - Diarrhoea [Unknown]
  - Product use issue [Unknown]
  - Abdominal pain [Unknown]
  - Lyme disease [Unknown]

NARRATIVE: CASE EVENT DATE: 201702
